FAERS Safety Report 8124586-9 (Version None)
Quarter: 2012Q1

REPORT INFORMATION
  Report Type: 
  Country: None (occurrence: None)
  Receive Date: 20120209
  Receipt Date: 20120207
  Transmission Date: 20120608
  Serious: Yes (Hospitalization, Other)
  Sender: FDA-Public Use
  Company Number: US-BAYER-2012-009079

PATIENT
  Age: 21 Year
  Sex: Female

DRUGS (1)
  1. BETASERON [Suspect]
     Indication: MULTIPLE SCLEROSIS
     Dosage: 4 MIU, QOD
     Route: 058
     Dates: start: 20120113, end: 20120127

REACTIONS (9)
  - MEMORY IMPAIRMENT [None]
  - MUSCULAR WEAKNESS [None]
  - ASTHENIA [None]
  - STARING [None]
  - HEADACHE [None]
  - URINARY INCONTINENCE [None]
  - FALL [None]
  - HEAD DISCOMFORT [None]
  - AURA [None]
